FAERS Safety Report 24187021 (Version 1)
Quarter: 2024Q3

REPORT INFORMATION
  Report Type: Spontaneous
  Country: JP (occurrence: JP)
  Receive Date: 20240808
  Receipt Date: 20240808
  Transmission Date: 20241016
  Serious: Yes (Death, Hospitalization, Other)
  Sender: GRANULES INDIA
  Company Number: JP-GRANULES-JP-2024GRALIT00309

PATIENT
  Age: 44 Year
  Sex: Female

DRUGS (2)
  1. ACETAMINOPHEN [Suspect]
     Active Substance: ACETAMINOPHEN
     Indication: Abdominal pain
     Route: 065
  2. OMEPRAZOLE [Suspect]
     Active Substance: OMEPRAZOLE
     Indication: Abdominal pain
     Route: 065

REACTIONS (3)
  - Thrombocytopenia [Fatal]
  - Cerebral venous sinus thrombosis [Fatal]
  - Eosinophilic granulomatosis with polyangiitis [Fatal]
